FAERS Safety Report 26127343 (Version 1)
Quarter: 2025Q4

REPORT INFORMATION
  Report Type: Spontaneous
  Country: US (occurrence: US)
  Receive Date: 20251205
  Receipt Date: 20251205
  Transmission Date: 20260118
  Serious: No
  Sender: PFIZER
  Company Number: US-PFIZER INC-202500236690

PATIENT
  Age: 15 Year
  Sex: Female

DRUGS (1)
  1. LITFULO [Suspect]
     Active Substance: RITLECITINIB TOSYLATE
     Dosage: UNK, 50 MG

REACTIONS (4)
  - Loss of personal independence in daily activities [Unknown]
  - Eczema [Unknown]
  - Alopecia [Unknown]
  - Drug ineffective [Unknown]
